FAERS Safety Report 11275846 (Version 1)
Quarter: 2015Q3

REPORT INFORMATION
  Report Type: Spontaneous
  Country: US (occurrence: None)
  Receive Date: 20150715
  Receipt Date: 20150715
  Transmission Date: 20151125
  Serious: No
  Sender: FDA-Public Use
  Company Number: None

PATIENT

DRUGS (1)
  1. SCLEROSOL [Suspect]
     Active Substance: TALC
     Indication: PLEURAL EFFUSION
     Route: 034
     Dates: start: 20150710, end: 20150710

REACTIONS (3)
  - Device malfunction [None]
  - Product quality issue [None]
  - Product packaging quantity issue [None]

NARRATIVE: CASE EVENT DATE: 20150710
